FAERS Safety Report 16903344 (Version 1)
Quarter: 2019Q4

REPORT INFORMATION
  Report Type: Spontaneous
  Country: US (occurrence: US)
  Receive Date: 20191010
  Receipt Date: 20191010
  Transmission Date: 20200122
  Serious: Yes (Other)
  Sender: FDA-Public Use
  Company Number: US-AMGEN-USASP2019162319

PATIENT
  Age: 47 Year
  Sex: Male

DRUGS (2)
  1. SENSIPAR [Suspect]
     Active Substance: CINACALCET HYDROCHLORIDE
     Indication: END STAGE RENAL DISEASE
     Dosage: UNK
     Route: 065
  2. SENSIPAR [Suspect]
     Active Substance: CINACALCET HYDROCHLORIDE
     Indication: THYROID DISORDER

REACTIONS (4)
  - Adverse event [Unknown]
  - Renal transplant [Unknown]
  - Product dose omission [Unknown]
  - Pancreas transplant [Unknown]

NARRATIVE: CASE EVENT DATE: 20161031
